FAERS Safety Report 5309416-2 (Version None)
Quarter: 2007Q2

REPORT INFORMATION
  Report Type: 
  Country: None (occurrence: None)
  Receive Date: 20070427
  Receipt Date: 20070425
  Transmission Date: 20071010
  Serious: Yes (Hospitalization, Other)
  Sender: FDA-Public Use
  Company Number: US-BRISTOL-MYERS SQUIBB COMPANY-13760335

PATIENT
  Age: 67 Year
  Sex: Female
  Weight: 70 kg

DRUGS (12)
  1. PRAVACHOL [Suspect]
     Indication: BLOOD CHOLESTEROL INCREASED
     Route: 048
     Dates: start: 19840101
  2. MULTI-VITAMIN [Concomitant]
     Route: 048
  3. PREVACID [Concomitant]
     Route: 048
  4. ALDACTONE [Concomitant]
     Route: 048
  5. ASPIRIN [Concomitant]
     Route: 048
  6. CLINORIL [Concomitant]
     Route: 048
  7. LANTUS [Concomitant]
  8. REGULAR INSULIN [Concomitant]
  9. TENORMIN [Concomitant]
     Route: 048
  10. SINGULAIR [Concomitant]
     Route: 048
  11. KLONOPIN [Concomitant]
     Indication: INSOMNIA
     Route: 048
  12. ATENOLOL [Concomitant]
     Route: 048

REACTIONS (5)
  - BACK PAIN [None]
  - HAEMOGLOBIN DECREASED [None]
  - HEPATITIS A [None]
  - LIVER FUNCTION TEST ABNORMAL [None]
  - POST PROCEDURAL HAEMORRHAGE [None]
